FAERS Safety Report 8364617-4 (Version None)
Quarter: 2012Q2

REPORT INFORMATION
  Report Type: 
  Country: None (occurrence: None)
  Receive Date: 20120516
  Receipt Date: 20120508
  Transmission Date: 20120825
  Serious: Yes (Hospitalization)
  Sender: FDA-Public Use
  Company Number: KR-ROCHE-1068056

PATIENT
  Sex: Female
  Weight: 62 kg

DRUGS (5)
  1. BLINDED ALISPORIVIR [Suspect]
     Indication: HEPATITIS C
     Route: 048
     Dates: start: 20111220, end: 20120418
  2. UCERAX [Concomitant]
     Dates: start: 20120313
  3. COPEGUS [Suspect]
     Indication: HEPATITIS C
     Route: 048
     Dates: start: 20111220, end: 20120430
  4. PEGASYS [Suspect]
     Indication: HEPATITIS C
     Route: 058
     Dates: start: 20111220, end: 20120424
  5. GANATON [Concomitant]
     Dates: start: 20120313

REACTIONS (1)
  - LOWER LIMB FRACTURE [None]
